FAERS Safety Report 9472857 (Version 1)
Quarter: 2013Q3

REPORT INFORMATION
  Report Type: Spontaneous
  Country: US (occurrence: None)
  Receive Date: 20130820
  Receipt Date: 20130820
  Transmission Date: 20140515
  Serious: Yes (Death)
  Sender: FDA-Public Use
  Company Number: 2013P1017330

PATIENT
  Sex: 0

DRUGS (1)
  1. LEVOFLOXACIN [Suspect]
     Indication: PNEUMONIA
     Dosage: Q48H

REACTIONS (4)
  - Antibiotic level below therapeutic [None]
  - Hypoxia [None]
  - Respiratory failure [None]
  - Treatment failure [None]
